FAERS Safety Report 6282273-6 (Version None)
Quarter: 2009Q3

REPORT INFORMATION
  Report Type: 
  Country: None (occurrence: None)
  Receive Date: 20090724
  Receipt Date: 20090720
  Transmission Date: 20100115
  Serious: Yes (Hospitalization)
  Sender: FDA-Public Use
  Company Number: US-AVENTIS-200911557US

PATIENT
  Sex: Female
  Weight: 54.4 kg

DRUGS (8)
  1. LOVENOX [Suspect]
     Indication: THROMBOSIS PROPHYLAXIS
     Dates: start: 20081001, end: 20090601
  2. LOVENOX [Suspect]
     Dates: start: 20081001, end: 20090601
  3. LOVENOX [Suspect]
     Dates: start: 20081001, end: 20090601
  4. LOVENOX [Suspect]
     Dates: start: 20081001, end: 20090601
  5. REGLAN [Concomitant]
     Dates: start: 20070801
  6. PREDNISONE TAB [Concomitant]
     Dates: start: 20061201
  7. PROCARDIA [Concomitant]
     Dates: start: 20080224, end: 20090506
  8. ENDOCIN-SR [Concomitant]
     Dates: start: 20080224, end: 20090401

REACTIONS (3)
  - DRUG EXPOSURE DURING PREGNANCY [None]
  - INJECTION SITE HAEMATOMA [None]
  - PREMATURE LABOUR [None]
